FAERS Safety Report 5014048-X (Version None)
Quarter: 2006Q2

REPORT INFORMATION
  Report Type: 
  Country: None (occurrence: None)
  Receive Date: 20060414
  Receipt Date: 20060131
  Transmission Date: 20061013
  Serious: No
  Sender: FDA-Public Use
  Company Number: 2006SP000570

PATIENT
  Age: 70 Year
  Sex: Female
  Weight: 95.2554 kg

DRUGS (3)
  1. LUNESTA [Suspect]
     Indication: INSOMNIA
     Dosage: 2 MG;1X;ORAL
     Route: 048
     Dates: start: 20060121, end: 20060121
  2. BENICAR [Concomitant]
  3. XANAX [Concomitant]

REACTIONS (4)
  - DIARRHOEA [None]
  - DYSGEUSIA [None]
  - NAUSEA [None]
  - VOMITING [None]
